FAERS Safety Report 4994149-2 (Version None)
Quarter: 2006Q2

REPORT INFORMATION
  Report Type: 
  Country: None (occurrence: None)
  Receive Date: 20060503
  Receipt Date: 20060421
  Transmission Date: 20061013
  Serious: Yes (Hospitalization)
  Sender: FDA-Public Use
  Company Number: 2006JP001090

PATIENT
  Age: 63 Year
  Sex: Female
  Weight: 52 kg

DRUGS (8)
  1. FUNGUARD                 (MICAFUNGIN) [Suspect]
     Indication: FUNGAL INFECTION
     Dosage: 150 MG, UID/QD, IV DRIP
     Route: 041
     Dates: start: 20060412, end: 20060412
  2. LIPITOR [Concomitant]
  3. DIART (AZOSEMIDE) [Concomitant]
  4. UNIFYL TABLET [Concomitant]
  5. KIPRES (MONTELUKAST SODIUM) [Concomitant]
  6. INOLIN (TRETOQUINOL HYDROCHLORIDE) [Concomitant]
  7. SINGULAIR [Concomitant]
  8. SPIROPENT (CLENBUTEROL HYDROCHLORIDE) [Concomitant]

REACTIONS (6)
  - BLOOD CREATINE PHOSPHOKINASE INCREASED [None]
  - CHILLS [None]
  - HAEMATURIA [None]
  - HAEMOLYSIS [None]
  - HEPATIC FUNCTION ABNORMAL [None]
  - PALPITATIONS [None]
